FAERS Safety Report 6391309-3 (Version None)
Quarter: 2009Q4

REPORT INFORMATION
  Report Type: 
  Country: None (occurrence: None)
  Receive Date: 20091007
  Receipt Date: 20091006
  Transmission Date: 20100525
  Serious: No
  Sender: FDA-Public Use
  Company Number: US-ROXANE LABORATORIES, INC.-2009-RO-00770RO

PATIENT
  Sex: Female
  Weight: 54 kg

DRUGS (8)
  1. LEVETIRACETAM [Suspect]
     Indication: PAIN MANAGEMENT
     Dosage: 3000 MG
  2. LEVETIRACETAM [Suspect]
     Dosage: 1500 MG
  3. OXYCONTIN [Concomitant]
     Indication: BACK PAIN
     Dosage: 160 MG
     Dates: start: 20040101
  4. OXYCONTIN [Concomitant]
     Indication: COCCYGECTOMY
  5. BENADRYL [Concomitant]
     Indication: MULTIPLE ALLERGIES
  6. BACLOFEN [Concomitant]
     Indication: BLADDER DISORDER
  7. PERCOCET [Concomitant]
     Indication: BREAKTHROUGH PAIN
  8. OXYCODONE [Concomitant]
     Dates: start: 20090727

REACTIONS (8)
  - ANGER [None]
  - DEPRESSION [None]
  - HOSTILITY [None]
  - HYPERSENSITIVITY [None]
  - INSOMNIA [None]
  - IRRITABILITY [None]
  - MOOD SWINGS [None]
  - NEURALGIA [None]
